FAERS Safety Report 4684749-1 (Version None)
Quarter: 2005Q2

REPORT INFORMATION
  Report Type: 
  Country: None (occurrence: None)
  Receive Date: 20050531
  Receipt Date: 20050207
  Transmission Date: 20051028
  Serious: Yes (Other)
  Sender: FDA-Public Use
  Company Number: USA050188892

PATIENT
  Age: 80 Year
  Sex: Male

DRUGS (4)
  1. ZYPREXA [Suspect]
     Indication: AGITATION
     Dosage: 70 MG/ DAY
     Dates: start: 20041116
  2. LEXAPRO [Concomitant]
  3. ATIVAN [Concomitant]
  4. HALDOL (HALOPERIDOL DECANOATE) [Concomitant]

REACTIONS (14)
  - ASTHENIA [None]
  - BODY TEMPERATURE INCREASED [None]
  - CEREBROVASCULAR ACCIDENT [None]
  - CONTUSION [None]
  - CONVULSION [None]
  - CYSTITIS [None]
  - DIFFICULTY IN WALKING [None]
  - DYSPHAGIA [None]
  - EATING DISORDER SYMPTOM [None]
  - EYELID PTOSIS [None]
  - FACIAL PARESIS [None]
  - FAECAL INCONTINENCE [None]
  - MUSCLE RIGIDITY [None]
  - PRESCRIBED OVERDOSE [None]
